FAERS Safety Report 9479155 (Version 1)
Quarter: 2013Q3

REPORT INFORMATION
  Report Type: Spontaneous
  Country: AU (occurrence: AU)
  Receive Date: 20130827
  Receipt Date: 20130827
  Transmission Date: 20140515
  Serious: Yes (Hospitalization)
  Sender: FDA-Public Use
  Company Number: AU-ELI_LILLY_AND_COMPANY-AU201308005486

PATIENT
  Sex: Male

DRUGS (1)
  1. AXIRON [Suspect]
     Dosage: UNK, UNKNOWN
     Route: 065

REACTIONS (1)
  - Vertigo [Unknown]
